FAERS Safety Report 6531696-6 (Version None)
Quarter: 2010Q1

REPORT INFORMATION
  Report Type: 
  Country: None (occurrence: None)
  Receive Date: 20100108
  Receipt Date: 20091230
  Transmission Date: 20100710
  Serious: Yes (Other)
  Sender: FDA-Public Use
  Company Number: US-PFIZER INC-2010000324

PATIENT
  Sex: Female
  Weight: 75.283 kg

DRUGS (6)
  1. LYRICA [Suspect]
     Indication: TARSAL TUNNEL SYNDROME
     Dosage: 75MG IN MORNING AND 150MG AT BEDTIME
     Dates: start: 20091001
  2. LYRICA [Suspect]
     Dosage: 75 MG, 1X/DAY
     Dates: start: 20091001, end: 20091001
  3. SYNTHROID [Concomitant]
     Indication: THYROIDECTOMY
     Dosage: UNK
  4. ACETYLSALICYLIC ACID [Concomitant]
     Dosage: UNK
  5. CELEXA [Concomitant]
     Indication: DEPRESSION
     Dosage: UNK
  6. ACIPHEX [Concomitant]
     Indication: GASTROOESOPHAGEAL REFLUX DISEASE
     Dosage: UNK

REACTIONS (1)
  - EXTRASYSTOLES [None]
